FAERS Safety Report 18541058 (Version 3)
Quarter: 2020Q4

REPORT INFORMATION
  Report Type: Spontaneous
  Country: US (occurrence: US)
  Receive Date: 20201124
  Receipt Date: 20201130
  Transmission Date: 20210114
  Serious: Yes (Other)
  Sender: FDA-Public Use
  Company Number: US-PFIZER INC-2020463186

PATIENT
  Age: 28 Year
  Sex: Female

DRUGS (1)
  1. RUXIENCE [Suspect]
     Active Substance: RITUXIMAB-PVVR
     Indication: CHRONIC KIDNEY DISEASE
     Dosage: 800 MG

REACTIONS (3)
  - Off label use [Unknown]
  - Renal impairment [Unknown]
  - Product use in unapproved indication [Unknown]
